FAERS Safety Report 24530638 (Version 1)
Quarter: 2024Q4

REPORT INFORMATION
  Report Type: Report from Study
  Country: ZA (occurrence: ZA)
  Receive Date: 20241021
  Receipt Date: 20241021
  Transmission Date: 20250115
  Serious: Yes (Other)
  Sender: MYLAN
  Company Number: ZA-MYLANLABS-2024M1095338

PATIENT
  Age: 43 Year
  Sex: Female

DRUGS (2)
  1. CLOZAPINE [Suspect]
     Active Substance: CLOZAPINE
     Indication: Seasonal affective disorder
     Dosage: UNK UNK, QD,  DOSE: 100MG/100MG
     Route: 065
  2. CITALOPRAM [Concomitant]
     Active Substance: CITALOPRAM
     Indication: Seasonal affective disorder
     Dosage: 20 MILLIGRAM, QD
     Route: 065

REACTIONS (6)
  - Neutropenia [Unknown]
  - Weight increased [Unknown]
  - Constipation [Unknown]
  - Sedation [Unknown]
  - Dyslipidaemia [Unknown]
  - Off label use [Unknown]
